FAERS Safety Report 4927985-9 (Version None)
Quarter: 2006Q1

REPORT INFORMATION
  Report Type: 
  Country: None (occurrence: None)
  Receive Date: 20060223
  Receipt Date: 20060209
  Transmission Date: 20060701
  Serious: Yes (Life-Threatening)
  Sender: FDA-Public Use
  Company Number: 2006-BP-01570RO

PATIENT
  Age: 17 Year
  Sex: Male

DRUGS (8)
  1. METHOTREXATE [Suspect]
     Indication: ACUTE LYMPHOCYTIC LEUKAEMIA
     Dosage: SEE TEXT (NR, 1 IN 1 WK) IT
     Route: 037
  2. CYCLOPHOSPHAMIDE [Suspect]
     Indication: ACUTE LYMPHOCYTIC LEUKAEMIA
  3. MERCAPTOPURINE [Suspect]
     Indication: ACUTE LYMPHOCYTIC LEUKAEMIA
  4. DAUNORUBICINE (DAUNORUBICIN) [Suspect]
     Indication: ACUTE LYMPHOCYTIC LEUKAEMIA
  5. VINCRISTINE [Suspect]
     Indication: ACUTE LYMPHOCYTIC LEUKAEMIA
  6. PREDNISOLONE [Suspect]
     Indication: ACUTE LYMPHOCYTIC LEUKAEMIA
  7. ASPARAGINASE (ASPARAGINASE) [Suspect]
     Indication: ACUTE LYMPHOCYTIC LEUKAEMIA
  8. CYTARABINE [Suspect]
     Indication: ACUTE LYMPHOCYTIC LEUKAEMIA

REACTIONS (18)
  - APHAGIA [None]
  - APHASIA [None]
  - AREFLEXIA [None]
  - CSF LYMPHOCYTE COUNT INCREASED [None]
  - DYSARTHRIA [None]
  - DYSKINESIA [None]
  - FACIAL PARESIS [None]
  - HYPOREFLEXIA [None]
  - INFLAMMATION [None]
  - JAW DISORDER [None]
  - LEUKOENCEPHALOPATHY [None]
  - LOCAL SWELLING [None]
  - MUSCULAR WEAKNESS [None]
  - NEUROPATHY [None]
  - NUCLEAR MAGNETIC RESONANCE IMAGING BRAIN ABNORMAL [None]
  - PANCYTOPENIA [None]
  - RESPIRATORY DISORDER [None]
  - TONGUE PARALYSIS [None]
